FAERS Safety Report 20512706 (Version 1)
Quarter: 2022Q1

REPORT INFORMATION
  Report Type: Spontaneous
  Country: US (occurrence: None)
  Receive Date: 20220224
  Receipt Date: 20220224
  Transmission Date: 20220424
  Serious: Yes (Other)
  Sender: FDA-Public Use
  Company Number: None

PATIENT
  Age: 27 Year
  Sex: Female
  Weight: 76.5 kg

DRUGS (7)
  1. BENADRYL [Suspect]
     Active Substance: DIPHENHYDRAMINE HYDROCHLORIDE
     Indication: Migraine
     Dosage: OTHER FREQUENCY : ONCE;?
     Route: 042
     Dates: start: 20220212, end: 20220212
  2. REGLAN [Suspect]
     Active Substance: METOCLOPRAMIDE HYDROCHLORIDE
  3. NUVARING [Concomitant]
     Active Substance: ETHINYL ESTRADIOL\ETONOGESTREL
  4. TOPAMAX [Concomitant]
     Active Substance: TOPIRAMATE
  5. VALTREX [Concomitant]
     Active Substance: VALACYCLOVIR HYDROCHLORIDE
  6. IBUPROFEN [Concomitant]
     Active Substance: IBUPROFEN
  7. EXCEDRIN [Concomitant]
     Active Substance: ACETAMINOPHEN\ASPIRIN\CAFFEINE

REACTIONS (10)
  - Feeling abnormal [None]
  - Loss of consciousness [None]
  - Seizure [None]
  - Coordination abnormal [None]
  - Pupil fixed [None]
  - Paranoia [None]
  - Anxiety [None]
  - Balance disorder [None]
  - Feeling cold [None]
  - Dyskinesia [None]

NARRATIVE: CASE EVENT DATE: 20220212
